FAERS Safety Report 7902213-0 (Version None)
Quarter: 2011Q4

REPORT INFORMATION
  Report Type: 
  Country: None (occurrence: None)
  Receive Date: 20111108
  Receipt Date: 20111030
  Transmission Date: 20120403
  Serious: Yes (Hospitalization, Other)
  Sender: FDA-Public Use
  Company Number: NZ-B.I. PHARMACEUTICALS,INC./RIDGEFIELD-2011-AU-00637AU

PATIENT
  Sex: Male

DRUGS (4)
  1. PRADAXA [Suspect]
     Dosage: 300 MG
     Route: 048
     Dates: start: 20110712, end: 20110718
  2. CITALOPRAM HYDROBROMIDE [Concomitant]
     Dosage: 20 MG
     Route: 048
  3. SIMVASTATIN [Concomitant]
     Dosage: 20 MG
     Route: 048
  4. OMEPRAZOLE [Concomitant]
     Dosage: 20 MG
     Route: 048

REACTIONS (6)
  - FATIGUE [None]
  - MEDICATION ERROR [None]
  - GASTRIC ULCER [None]
  - HALLUCINATION [None]
  - GASTROINTESTINAL HAEMORRHAGE [None]
  - LETHARGY [None]
